FAERS Safety Report 8314191-3 (Version None)
Quarter: 2012Q2

REPORT INFORMATION
  Report Type: 
  Country: None (occurrence: None)
  Receive Date: 20120426
  Receipt Date: 20120413
  Transmission Date: 20120825
  Serious: Yes (Hospitalization)
  Sender: FDA-Public Use
  Company Number: JP-PFIZER INC-2012076030

PATIENT
  Age: 78 Year
  Sex: Male

DRUGS (8)
  1. GANATON [Concomitant]
     Route: 048
  2. GASMOTIN [Concomitant]
     Route: 048
  3. CANDESARTAN CILEXETIL [Concomitant]
     Indication: HYPERTENSION
     Dosage: 4 MG, DAILY
     Route: 048
     Dates: start: 20111115, end: 20111206
  4. GASCON [Concomitant]
     Route: 048
  5. BLADDERON [Concomitant]
     Route: 048
  6. SEVEN EP [Concomitant]
     Route: 048
  7. AMLODIPINE [Suspect]
     Indication: HYPERTENSION
     Dosage: 2.5 MG DAILY
     Route: 048
     Dates: start: 20111115, end: 20111206
  8. DAI-KENCHU-TO [Concomitant]
     Route: 048

REACTIONS (1)
  - CARDIAC FAILURE [None]
